FAERS Safety Report 23875021 (Version 1)
Quarter: 2024Q2

REPORT INFORMATION
  Report Type: Spontaneous
  Country: US (occurrence: None)
  Receive Date: 20240520
  Receipt Date: 20240520
  Transmission Date: 20240716
  Serious: Yes (Hospitalization)
  Sender: FDA-Public Use
  Company Number: None

PATIENT
  Age: 81 Year
  Sex: Male
  Weight: 78.9 kg

DRUGS (1)
  1. APIXABAN [Suspect]
     Active Substance: APIXABAN
     Dates: start: 20170615

REACTIONS (4)
  - Haemorrhage [None]
  - Groin pain [None]
  - Haematuria [None]
  - Urinary tract infection [None]

NARRATIVE: CASE EVENT DATE: 20240103
